FAERS Safety Report 23386838 (Version 2)
Quarter: 2024Q1

REPORT INFORMATION
  Report Type: Report from Study
  Country: LU (occurrence: LU)
  Receive Date: 20240110
  Receipt Date: 20240116
  Transmission Date: 20240410
  Serious: Yes (Hospitalization)
  Sender: FDA-Public Use
  Company Number: LU-ABBVIE-5578418

PATIENT
  Age: 63 Year
  Sex: Male
  Weight: 109 kg

DRUGS (14)
  1. CARBIDOPA\LEVODOPA [Suspect]
     Active Substance: CARBIDOPA\LEVODOPA
     Indication: Parkinson^s disease
     Route: 050
     Dates: start: 20200804
  2. CARBIDOPA\LEVODOPA [Suspect]
     Active Substance: CARBIDOPA\LEVODOPA
     Dosage: MD: 8.0 ML, CD: 5.3 ML/H, ED: 3.0 ML DURING 16 HOURS
     Route: 050
     Dates: start: 20231130, end: 20240110
  3. CARBIDOPA\LEVODOPA [Suspect]
     Active Substance: CARBIDOPA\LEVODOPA
     Dosage: MD: 8.0 ML, CD: 5.1 ML/H, ED: 3.0 ML DURING 16 HOURS
     Route: 050
     Dates: start: 20230706, end: 20231130
  4. CARBIDOPA\LEVODOPA [Suspect]
     Active Substance: CARBIDOPA\LEVODOPA
     Dosage: MD: 8.0 ML, CD: 5.1 ML/H, ED: 3.0 ML DURING 16 HOURS
     Route: 050
     Dates: start: 20240110
  5. PAROXETINE [Concomitant]
     Active Substance: PAROXETINE
     Indication: Antidepressant therapy
     Dosage: FORM STRENGTH: 20MG, ONCE A DAY IN THE EVENING
  6. MIANSERIN HYDROCHLORIDE [Concomitant]
     Active Substance: MIANSERIN HYDROCHLORIDE
     Indication: Product used for unknown indication
     Dosage: PRODUCT (MIANSERINE) - FORM STRENGTH: 60?PRODUCT (MIANSERINE) - FORM STRENGTH UNITS: UNKNOWN?PROD...
  7. COMTAN [Concomitant]
     Active Substance: ENTACAPONE
     Indication: Product used for unknown indication
     Dosage: TIME INTERVAL: 0.33333333 DAYS
  8. LORMETAZEPAM SANDOZ [Concomitant]
     Indication: Product used for unknown indication
     Dosage: FORM STRENGTH: 1MG, IF NEEDED AT NIGHT
  9. STALEVO [Concomitant]
     Active Substance: CARBIDOPA\ENTACAPONE\LEVODOPA
     Indication: Parkinson^s disease
     Dosage: TIME INTERVAL: 0.14285714 DAYS: FORM STRENGTH: 200
  10. BENSERAZIDE\LEVODOPA [Concomitant]
     Active Substance: BENSERAZIDE\LEVODOPA
     Indication: Product used for unknown indication
     Dosage: FORM STRENGTH: 125, ONCE A DAY IN THE EVENING
  11. LACTULOSE\PARAFFIN [Concomitant]
     Active Substance: LACTULOSE\PARAFFIN
     Indication: Product used for unknown indication
  12. BENSERAZIDE\LEVODOPA [Concomitant]
     Active Substance: BENSERAZIDE\LEVODOPA
     Indication: Product used for unknown indication
     Dosage: PRODUCT (PROLOPA DISPERSIBLE) - FORM STRENGTH: 125?PRODUCT (PROLOPA DISPERSIBLE) - FORM STRENGTH ...
  13. XANAX [Concomitant]
     Active Substance: ALPRAZOLAM
     Indication: Product used for unknown indication
     Dosage: PRODUCT (XANAX) - FORM STRENGTH: 0.5?PRODUCT (XANAX) - FORM STRENGTH UNITS: UNKNOWN?PRODUCT (XANA...
  14. XANAX [Concomitant]
     Active Substance: ALPRAZOLAM
     Indication: Product used for unknown indication
     Dosage: TIME INTERVAL: 0.33333333 DAYS: PRODUCT (XANAX) - FORM STRENGTH: 0.5?PRODUCT (XANAX) - FORM STREN...

REACTIONS (4)
  - Embedded device [Recovered/Resolved]
  - Freezing phenomenon [Not Recovered/Not Resolved]
  - Dyskinesia [Unknown]
  - Stoma site infection [Recovered/Resolved]

NARRATIVE: CASE EVENT DATE: 20231201
